FAERS Safety Report 10722210 (Version 2)
Quarter: 2015Q1

REPORT INFORMATION
  Report Type: Report from Study
  Country: US (occurrence: US)
  Receive Date: 20150120
  Receipt Date: 20150212
  Transmission Date: 20150721
  Serious: Yes (Death)
  Sender: FDA-Public Use
  Company Number: US-AMGEN-USASL2015004495

PATIENT
  Age: 88 Year
  Sex: Male
  Weight: 68.48 kg

DRUGS (1)
  1. PROLIA [Suspect]
     Active Substance: DENOSUMAB
     Indication: OSTEOPOROSIS
     Dosage: 60 UNK, Q6MO
     Route: 030
     Dates: start: 20130716, end: 20140218

REACTIONS (3)
  - Cardiac failure congestive [Fatal]
  - Coronary artery disease [Fatal]
  - Incorrect route of drug administration [Unknown]
